FAERS Safety Report 23872059 (Version 1)
Quarter: 2024Q2

REPORT INFORMATION
  Report Type: Spontaneous
  Country: FR (occurrence: FR)
  Receive Date: 20240520
  Receipt Date: 20240520
  Transmission Date: 20240716
  Serious: Yes (Other)
  Sender: FDA-Public Use
  Company Number: FR-AstraZeneca-2024A103586

PATIENT
  Sex: Female

DRUGS (1)
  1. FULVESTRANT [Suspect]
     Active Substance: FULVESTRANT
     Indication: Product used for unknown indication
     Dosage: UNK
     Route: 030

REACTIONS (11)
  - Metastases to bone [Unknown]
  - Diabetes mellitus [Unknown]
  - Asthenia [Unknown]
  - Abdominal pain [Unknown]
  - Arthralgia [Unknown]
  - Decreased appetite [Unknown]
  - Headache [Unknown]
  - Injection site granuloma [Unknown]
  - Nausea [Unknown]
  - Pelvic pain [Unknown]
  - Pain in jaw [Unknown]
